FAERS Safety Report 12889087 (Version 3)
Quarter: 2016Q4

REPORT INFORMATION
  Report Type: Spontaneous
  Country: IT (occurrence: IT)
  Receive Date: 20161027
  Receipt Date: 20161129
  Transmission Date: 20170207
  Serious: Yes (Other)
  Sender: FDA-Public Use
  Company Number: IT-PFIZER INC-2016486631

PATIENT
  Age: 52 Year
  Sex: Male
  Weight: 60 kg

DRUGS (7)
  1. FLUDARABINE PHOSPHATE. [Suspect]
     Active Substance: FLUDARABINE PHOSPHATE
     Dosage: 50 MG, DAILY (50 MG/DAY D1; D3)
     Dates: start: 20160716
  2. CYTARABINE. [Suspect]
     Active Substance: CYTARABINE
     Dosage: 340 MG, DAILY (340 MG/DAY D1; D3)
  3. ACYCLOVIR /00587301/ [Concomitant]
     Active Substance: ACYCLOVIR
     Indication: PROPHYLAXIS
     Dosage: UNK
     Dates: start: 20160715
  4. DIFLUCAN [Concomitant]
     Active Substance: FLUCONAZOLE
     Dosage: 400 MG, UNK
     Dates: start: 20160715, end: 20160727
  5. ZARZIO [Concomitant]
     Active Substance: FILGRASTIM
     Dosage: 30000 IU, UNK
     Route: 058
     Dates: start: 20160719, end: 20160811
  6. IDARUBICIN HCL [Suspect]
     Active Substance: IDARUBICIN HYDROCHLORIDE
     Dosage: 20 MG, DAILY (20 MG/DAY D1 AND D3)
     Dates: start: 20160716
  7. ROCEPHIN [Concomitant]
     Active Substance: CEFTRIAXONE SODIUM
     Indication: PROPHYLAXIS
     Dosage: UNK

REACTIONS (3)
  - Febrile neutropenia [Unknown]
  - Staphylococcal infection [Unknown]
  - Plateletcrit decreased [Unknown]

NARRATIVE: CASE EVENT DATE: 20160720
